FAERS Safety Report 17034581 (Version 2)
Quarter: 2019Q4

REPORT INFORMATION
  Report Type: Report from Study
  Country: LB (occurrence: LB)
  Receive Date: 20191115
  Receipt Date: 20191223
  Transmission Date: 20200122
  Serious: Yes (Death, Other)
  Sender: FDA-Public Use
  Company Number: LB-ROCHE-2475730

PATIENT
  Sex: Male

DRUGS (1)
  1. TECENTRIQ [Suspect]
     Active Substance: ATEZOLIZUMAB
     Indication: LUNG NEOPLASM MALIGNANT
     Dosage: HE ALSO TOOK DOSES ON 24/JAN/2019, 14/FEB/2019, 15/MAR/2019, 05/APR/2019, 07/JUN/2019, 28/JUN/2019,
     Route: 042
     Dates: start: 20190111, end: 20190719

REACTIONS (2)
  - Urinary tract infection [Unknown]
  - Urinary tract infection [Fatal]
